FAERS Safety Report 23650139 (Version 1)
Quarter: 2024Q1

REPORT INFORMATION
  Report Type: 
  Country: AU (occurrence: AU)
  Receive Date: 20240319
  Receipt Date: 20240319
  Transmission Date: 20240410
  Serious: Yes (Other)
  Sender: FDA-Public Use
  Company Number: AU-CELLTRION INC.-2024AU006348

PATIENT

DRUGS (3)
  1. INFLIXIMAB [Suspect]
     Active Substance: INFLIXIMAB
     Indication: Product used for unknown indication
  2. MESALAMINE [Concomitant]
     Active Substance: MESALAMINE
  3. BUDESONIDE [Concomitant]
     Active Substance: BUDESONIDE

REACTIONS (6)
  - Colitis ulcerative [Unknown]
  - Pain in extremity [Unknown]
  - Back pain [Unknown]
  - Injection site bruising [Unknown]
  - Injection site swelling [Unknown]
  - Intentional product use issue [Unknown]
